FAERS Safety Report 6674661-0 (Version None)
Quarter: 2010Q1

REPORT INFORMATION
  Report Type: 
  Country: None (occurrence: None)
  Receive Date: 20100329
  Receipt Date: 20090415
  Transmission Date: 20100710
  Serious: Yes (Other)
  Sender: FDA-Public Use
  Company Number: 2009186292

PATIENT
  Age: 47 Year
  Sex: Female
  Weight: 81.6 kg

DRUGS (2)
  1. GEODON (ZIPRASIDONE HCL) CAPSULE, HARD [Suspect]
     Indication: AFFECTIVE DISORDER
     Dosage: 40 MG 2X/DAY ORAL
     Route: 048
     Dates: start: 20080901, end: 20081101
  2. GEODON (ZIPRASIDONE HCL) CAPSULE, HARD [Suspect]
     Indication: BIPOLAR DISORDER
     Dosage: 40 MG 2X/DAY ORAL
     Route: 048
     Dates: start: 20080901, end: 20081101

REACTIONS (1)
  - TARDIVE DYSKINESIA [None]
